FAERS Safety Report 9871423 (Version 1)
Quarter: 2014Q1

REPORT INFORMATION
  Report Type: Spontaneous
  Country: FR (occurrence: FR)
  Receive Date: 20140205
  Receipt Date: 20140205
  Transmission Date: 20141002
  Serious: Yes (Death)
  Sender: FDA-Public Use
  Company Number: FR-WATSON-2014-01414

PATIENT
  Age: 63 Year
  Sex: Male

DRUGS (7)
  1. CARBOPLATINE ACTAVIS [Suspect]
     Indication: LUNG ADENOCARCINOMA
     Dosage: 700 MG
     Route: 042
     Dates: start: 20130503, end: 20130503
  2. ALIMTA [Suspect]
     Indication: LUNG ADENOCARCINOMA
     Dosage: 1100 MG, UNK
     Route: 042
     Dates: start: 20130503, end: 20130503
  3. VITAMIN B12                        /00056201/ [Concomitant]
  4. SPECIAFOLDINE [Concomitant]
  5. ONDANSETRON [Concomitant]
  6. SOLUMEDROL [Concomitant]
  7. EMEND                              /01627301/ [Concomitant]

REACTIONS (3)
  - Lactic acidosis [Fatal]
  - Lung infection [Fatal]
  - Febrile neutropenia [Fatal]
